FAERS Safety Report 9838552 (Version 3)
Quarter: 2014Q1

REPORT INFORMATION
  Report Type: Report from Study
  Country: CA (occurrence: CA)
  Receive Date: 20140123
  Receipt Date: 20140328
  Transmission Date: 20141002
  Serious: Yes (Hospitalization)
  Sender: FDA-Public Use
  Company Number: PHHY2013CA043469

PATIENT
  Sex: Male

DRUGS (3)
  1. EXJADE [Suspect]
     Indication: APLASTIC ANAEMIA
     Dosage: 2000 MG, QD
     Route: 048
     Dates: start: 201302
  2. EXJADE [Suspect]
     Dosage: UNK UKN, UNK
     Route: 048
  3. TACROLIMUS [Concomitant]
     Dosage: UNK UKN, UNK

REACTIONS (3)
  - Aspergillus infection [Unknown]
  - Flatulence [Unknown]
  - Diarrhoea [Unknown]
